FAERS Safety Report 4338335-3 (Version None)
Quarter: 2004Q2

REPORT INFORMATION
  Report Type: 
  Country: None (occurrence: None)
  Receive Date: 20040407
  Receipt Date: 20040326
  Transmission Date: 20050107
  Serious: No
  Sender: FDA-Public Use
  Company Number: 04P-056-0247493-00

PATIENT
  Age: 56 Year
  Sex: Female

DRUGS (6)
  1. DEPAKOTE [Suspect]
     Indication: DRUG USE FOR UNKNOWN INDICATION
     Dosage: 500 MG, 2 IN 1 D, ORAL
     Route: 048
     Dates: start: 20031122, end: 20031217
  2. ANETHOLE TRITHIONE [Suspect]
     Indication: DRUG USE FOR UNKNOWN INDICATION
     Dosage: 150 MG, 1 IN 1 D, PER ORAL
     Route: 048
     Dates: start: 20031121, end: 20031217
  3. CYAMEMAZINE [Suspect]
     Indication: DRUG USE FOR UNKNOWN INDICATION
     Dosage: 110 DOSAGE FORMS, PER ORAL
     Route: 048
     Dates: start: 20031122, end: 20031219
  4. RISPERIDONE [Suspect]
     Indication: DRUG USE FOR UNKNOWN INDICATION
     Dosage: 6 MG, 1 IN 1 D, PER ORAL
     Route: 048
     Dates: end: 20031219
  5. AMOXICILLIN TRIHYDRATE [Suspect]
     Indication: PYREXIA
     Dosage: 1 DOSAGE FORMS, 3 IN 1 D, PER ORAL
     Route: 048
     Dates: start: 20031208, end: 20031217
  6. ACETAMINOPHEN [Concomitant]

REACTIONS (7)
  - ANOREXIA [None]
  - ASTHENIA [None]
  - CHOLESTASIS [None]
  - CYTOLYTIC HEPATITIS [None]
  - JAUNDICE [None]
  - LUNG INFECTION [None]
  - PYREXIA [None]
